FAERS Safety Report 9708545 (Version 2)
Quarter: 2013Q4

REPORT INFORMATION
  Report Type: Spontaneous
  Country: US (occurrence: US)
  Receive Date: 20131125
  Receipt Date: 20131209
  Transmission Date: 20140711
  Serious: Yes (Other)
  Sender: FDA-Public Use
  Company Number: US-TEVA-445642USA

PATIENT
  Age: 25 Year
  Sex: Female

DRUGS (2)
  1. AMRIX [Suspect]
     Indication: MUSCLE SPASMS
  2. AMRIX [Suspect]
     Indication: MYOFASCIAL SPASM

REACTIONS (2)
  - Rectal haemorrhage [Recovered/Resolved]
  - Faeces discoloured [Recovered/Resolved]
